FAERS Safety Report 9536846 (Version 1)
Quarter: 2013Q3

REPORT INFORMATION
  Report Type: Spontaneous
  Country: NL (occurrence: NL)
  Receive Date: 20130919
  Receipt Date: 20130919
  Transmission Date: 20140515
  Serious: Yes (Death, Other)
  Sender: FDA-Public Use
  Company Number: NL-GILEAD-2013-0083697

PATIENT
  Age: 26 Year
  Sex: Female

DRUGS (2)
  1. CAYSTON [Suspect]
     Indication: PRODUCT USED FOR UNKNOWN INDICATION
  2. COLISTINE [Concomitant]

REACTIONS (1)
  - Death [Fatal]
